FAERS Safety Report 8992330 (Version 1)
Quarter: 2012Q4

REPORT INFORMATION
  Report Type: 
  Country: US (occurrence: US)
  Receive Date: 20121231
  Receipt Date: 20121231
  Transmission Date: 20130627
  Serious: No
  Sender: FDA-Public Use
  Company Number: US-VERTEX PHARMACEUTICALS INC.-2012-026727

PATIENT
  Sex: Female

DRUGS (6)
  1. VX-950 (TELAPREVIR) [Suspect]
     Indication: HEPATITIS C
     Dosage: 2 DF, tid
     Route: 048
  2. PEGASYS [Suspect]
     Indication: HEPATITIS C
  3. RIBAVIRIN [Suspect]
     Indication: HEPATITIS C
  4. PROZAC [Concomitant]
     Dosage: 10 mg, UNK
  5. ADDERALL [Concomitant]
     Dosage: 20 mg, UNK
  6. NEURONTIN [Concomitant]
     Dosage: 100 mg, UNK

REACTIONS (3)
  - Weight decreased [Unknown]
  - Fatigue [Unknown]
  - Nausea [Unknown]
